FAERS Safety Report 4914089-4 (Version None)
Quarter: 2006Q1

REPORT INFORMATION
  Report Type: 
  Country: None (occurrence: None)
  Receive Date: 20060213
  Receipt Date: 20060202
  Transmission Date: 20060701
  Serious: Yes (Other)
  Sender: FDA-Public Use
  Company Number: 2006-02-0019

PATIENT
  Age: 50 Year
  Sex: Male
  Weight: 66 kg

DRUGS (2)
  1. REBETOL [Suspect]
     Indication: HEPATITIS C
     Dosage: 800 MG QD ORAL
     Route: 048
     Dates: start: 20020913, end: 20030301
  2. PEGASYS [Suspect]
     Indication: HEPATITIS C
     Dosage: 180 MCG  QW  SUBCUTANEOUS
     Route: 058
     Dates: start: 20020913, end: 20030301

REACTIONS (10)
  - ASTHENIA [None]
  - BACK PAIN [None]
  - COUGH [None]
  - ERECTILE DYSFUNCTION [None]
  - IMPAIRED WORK ABILITY [None]
  - INJECTION SITE REACTION [None]
  - INSOMNIA [None]
  - MYALGIA [None]
  - PYREXIA [None]
  - TACHYCARDIA [None]
